FAERS Safety Report 8963195 (Version 1)
Quarter: 2012Q4

REPORT INFORMATION
  Report Type: 
  Country: SG (occurrence: SG)
  Receive Date: 20121213
  Receipt Date: 20121213
  Transmission Date: 20130627
  Serious: Yes (Other)
  Sender: FDA-Public Use
  Company Number: SG-PFIZER INC-2012306644

PATIENT
  Age: 11 Year
  Sex: Female

DRUGS (3)
  1. GEMCITABINE [Suspect]
     Indication: OSTEOSARCOMA
     Dosage: 900 mg/m2, UNK
  2. DOCETAXEL [Suspect]
     Indication: OSTEOSARCOMA
     Dosage: 100 mg/m2, UNK
  3. CO-TRIMOXAZOLE [Concomitant]

REACTIONS (5)
  - Toxic skin eruption [Unknown]
  - Rash pruritic [None]
  - Diarrhoea [None]
  - Mouth ulceration [None]
  - Febrile neutropenia [None]
